FAERS Safety Report 8418434-7 (Version None)
Quarter: 2012Q2

REPORT INFORMATION
  Report Type: 
  Country: None (occurrence: None)
  Receive Date: 20120607
  Receipt Date: 20120601
  Transmission Date: 20120825
  Serious: Yes (Congenital Anomaly)
  Sender: FDA-Public Use
  Company Number: DE-PFIZER INC-2012134677

PATIENT
  Sex: Male
  Weight: 3.1 kg

DRUGS (7)
  1. MUSARIL [Concomitant]
     Route: 064
  2. ARCOXIA [Concomitant]
     Route: 064
  3. FRAGMIN [Concomitant]
     Route: 064
  4. PROCHLORPERAZINE [Concomitant]
     Route: 064
  5. OXYCODONE [Concomitant]
     Route: 064
  6. PANTOPRAZOLE [Suspect]
     Indication: GASTRITIS
     Dosage: 40 MG, UNK
     Route: 064
  7. MULTI-VITAMINS [Concomitant]
     Indication: PROPHYLAXIS OF NEURAL TUBE DEFECT
     Dosage: 0.4 MG, UNK
     Route: 064
     Dates: start: 20100604

REACTIONS (7)
  - MATERNAL EXPOSURE TIMING UNSPECIFIED [None]
  - OESOPHAGEAL ATRESIA [None]
  - ENTEROVESICAL FISTULA [None]
  - ATRIAL SEPTAL DEFECT [None]
  - ANAL ATRESIA [None]
  - PATENT DUCTUS ARTERIOSUS [None]
  - TRACHEO-OESOPHAGEAL FISTULA [None]
